FAERS Safety Report 10049118 (Version 1)
Quarter: 2014Q2

REPORT INFORMATION
  Report Type: Spontaneous
  Country: US (occurrence: US)
  Receive Date: 20140401
  Receipt Date: 20140401
  Transmission Date: 20141212
  Serious: Yes (Other)
  Sender: FDA-Public Use
  Company Number: US-UCBSA-115916

PATIENT
  Age: 24 Year
  Sex: Male

DRUGS (1)
  1. KEPPRA XR [Suspect]
     Indication: CONVULSION
     Dosage: DOSE UNKNOWN

REACTIONS (2)
  - Brain injury [Unknown]
  - Road traffic accident [Unknown]
